FAERS Safety Report 15737581 (Version 1)
Quarter: 2018Q4

REPORT INFORMATION
  Report Type: Spontaneous
  Country: FR (occurrence: FR)
  Receive Date: 20181219
  Receipt Date: 20181219
  Transmission Date: 20190205
  Serious: Yes (Hospitalization)
  Sender: FDA-Public Use
  Company Number: FR-BIOGEN-2018BI00671203

PATIENT
  Sex: Female
  Weight: 5.68 kg

DRUGS (1)
  1. SPINRAZA [Suspect]
     Active Substance: NUSINERSEN
     Indication: SPINAL MUSCULAR ATROPHY
     Route: 037
     Dates: start: 20171026

REACTIONS (2)
  - Encephalitis [Not Recovered/Not Resolved]
  - Hydrocephalus [Unknown]

NARRATIVE: CASE EVENT DATE: 20180913
